FAERS Safety Report 9741873 (Version 1)
Quarter: 2013Q4

REPORT INFORMATION
  Report Type: Spontaneous
  Country: FR (occurrence: FR)
  Receive Date: 20131210
  Receipt Date: 20131210
  Transmission Date: 20140711
  Serious: Yes (Hospitalization, Other)
  Sender: FDA-Public Use
  Company Number: PHHY2013FR143340

PATIENT
  Sex: Female

DRUGS (5)
  1. NEORAL [Suspect]
     Indication: RENAL TRANSPLANT
     Dosage: UNK
     Dates: start: 1988
  2. NEORAL [Suspect]
     Dosage: 25 MG, QD
  3. IMUREL [Concomitant]
  4. CALCIUM [Concomitant]
  5. BETA BLOCKER [Concomitant]

REACTIONS (3)
  - Breast cancer metastatic [Unknown]
  - Metastases to lymph nodes [Unknown]
  - Bone marrow failure [Unknown]
